FAERS Safety Report 11769217 (Version 1)
Quarter: 2015Q4

REPORT INFORMATION
  Report Type: Spontaneous
  Country: US (occurrence: None)
  Receive Date: 20151123
  Receipt Date: 20151123
  Transmission Date: 20160304
  Serious: Yes (Other)
  Sender: FDA-Public Use
  Company Number: US-MDT-ADR-2015-02212

PATIENT
  Age: 42 Year
  Sex: Male

DRUGS (2)
  1. TINAZIDINE [Suspect]
     Active Substance: TIZANIDINE
  2. BACLOFEN. [Suspect]
     Active Substance: BACLOFEN

REACTIONS (3)
  - Coma [None]
  - Generalised tonic-clonic seizure [None]
  - Overdose [None]
